FAERS Safety Report 5397568-8 (Version None)
Quarter: 2007Q3

REPORT INFORMATION
  Report Type: 
  Country: None (occurrence: None)
  Receive Date: 20070726
  Receipt Date: 20070716
  Transmission Date: 20080115
  Serious: Yes (Hospitalization)
  Sender: FDA-Public Use
  Company Number: HR-ROCHE-507472

PATIENT
  Age: 55 Year
  Sex: Female

DRUGS (8)
  1. CELLCEPT [Suspect]
     Route: 065
  2. SANDIMMUNE [Suspect]
     Dosage: 2.5MG/KG/DAY
     Route: 065
  3. SANDIMMUNE [Suspect]
     Dosage: SLIGHTLY TAPERED
     Route: 065
  4. DECORTIN [Suspect]
     Route: 065
  5. LAMIVUDINE [Suspect]
     Indication: DRUG USE FOR UNKNOWN INDICATION
     Route: 065
  6. LAMIVUDINE [Suspect]
     Dosage: 150MG GIVEN INTERMITTENTLY DURING THE LAST SIX MONTHS BEFORE HOSPITALISATION
     Route: 065
  7. NIFEDIPINE [Concomitant]
  8. ATENOLOL [Concomitant]

REACTIONS (8)
  - BLOOD AMYLASE INCREASED [None]
  - CONFUSIONAL STATE [None]
  - DIZZINESS [None]
  - GRAND MAL CONVULSION [None]
  - INSOMNIA [None]
  - MEMORY IMPAIRMENT [None]
  - NERVOUSNESS [None]
  - NEUROTOXICITY [None]
